FAERS Safety Report 25035971 (Version 1)
Quarter: 2025Q1

REPORT INFORMATION
  Report Type: Spontaneous
  Country: US (occurrence: US)
  Receive Date: 20250304
  Receipt Date: 20250304
  Transmission Date: 20250409
  Serious: Yes (Death, Hospitalization, Other)
  Sender: BAYER HEALTHCARE PHARMACEUTICALS INC.
  Company Number: US-BAYER-2025A025719

PATIENT
  Age: 46 Year
  Sex: Female

DRUGS (4)
  1. ADEMPAS [Suspect]
     Active Substance: RIOCIGUAT
     Indication: Pulmonary hypertension
     Dosage: 2.5 MG, TID
     Route: 048
     Dates: start: 20210621, end: 20250214
  2. HUMAN RED BLOOD CELL [Concomitant]
     Active Substance: HUMAN RED BLOOD CELL
     Indication: Haemoglobin decreased
  3. HUMAN RED BLOOD CELL [Concomitant]
     Active Substance: HUMAN RED BLOOD CELL
     Indication: Haemoglobin decreased
  4. SODIUM BICARBONATE [Concomitant]
     Active Substance: SODIUM BICARBONATE

REACTIONS (18)
  - Cardiac arrest [Fatal]
  - Shock haemorrhagic [None]
  - Gastrointestinal haemorrhage [None]
  - Portal vein thrombosis [None]
  - Pneumonia [None]
  - Upper respiratory tract infection [Not Recovered/Not Resolved]
  - Leukocyte adhesion deficiency [Recovering/Resolving]
  - Chronic hepatic failure [None]
  - Cardiac failure [None]
  - Haemoglobin decreased [None]
  - Hypoxia [None]
  - Hyponatraemia [None]
  - Cellulitis [Recovering/Resolving]
  - Abdominal distension [Not Recovered/Not Resolved]
  - Diarrhoea [None]
  - Vomiting [None]
  - Varices oesophageal [Recovering/Resolving]
  - Dyspnoea [None]

NARRATIVE: CASE EVENT DATE: 20250214
